FAERS Safety Report 24894760 (Version 4)
Quarter: 2025Q1

REPORT INFORMATION
  Report Type: Report from Study
  Country: US (occurrence: US)
  Receive Date: 20250128
  Receipt Date: 20250325
  Transmission Date: 20250409
  Serious: Yes (Hospitalization)
  Sender: SANOFI AVENTIS
  Company Number: US-SA-2025SA024139

PATIENT
  Age: 70 Year
  Sex: Male
  Weight: 76.4 kg

DRUGS (10)
  1. DOCETAXEL [Suspect]
     Active Substance: DOCETAXEL
     Indication: Hormone-refractory prostate cancer
     Dosage: 75 MG/M2, Q3W
     Route: 042
     Dates: start: 20241023, end: 20241023
  2. DOCETAXEL [Suspect]
     Active Substance: DOCETAXEL
     Dosage: 75 MG/M2, Q3W
     Route: 042
     Dates: start: 20241227, end: 20241227
  3. PREDNISONE [Suspect]
     Active Substance: PREDNISONE
     Indication: Hormone-refractory prostate cancer
     Dosage: 5 MG, BID
     Route: 048
     Dates: start: 20241024, end: 20250205
  4. LORIGERLIMAB [Suspect]
     Active Substance: LORIGERLIMAB
     Indication: Hormone-refractory prostate cancer
     Dosage: 6 MG/KG, Q3W
     Route: 042
     Dates: start: 20241023, end: 20241023
  5. LORIGERLIMAB [Suspect]
     Active Substance: LORIGERLIMAB
     Dosage: 6 MG/KG, Q3W
     Route: 042
     Dates: start: 20241227, end: 20241227
  6. DIGOXIN [Concomitant]
     Active Substance: DIGOXIN
     Dates: start: 20241213
  7. LEVOTHYROXINE [Concomitant]
     Active Substance: LEVOTHYROXINE
     Dates: start: 20241227, end: 20250115
  8. METOPROLOL [Concomitant]
     Active Substance: METOPROLOL
     Dates: start: 20241212
  9. POTASSIUM CHLORIDE [Concomitant]
     Active Substance: POTASSIUM CHLORIDE
     Dates: start: 20241111
  10. ERTAPENEM [Concomitant]
     Active Substance: ERTAPENEM
     Dates: start: 20250106

REACTIONS (3)
  - Troponin I increased [Recovered/Resolved]
  - Hypokalaemia [Recovered/Resolved]
  - Hypomagnesaemia [Recovered/Resolved]

NARRATIVE: CASE EVENT DATE: 20250114
